FAERS Safety Report 14098419 (Version 1)
Quarter: 2017Q4

REPORT INFORMATION
  Report Type: Spontaneous
  Country: US (occurrence: US)
  Receive Date: 20171017
  Receipt Date: 20171017
  Transmission Date: 20180321
  Serious: Yes (Other)
  Sender: FDA-Public Use
  Company Number: US-WEST-WARD PHARMACEUTICALS CORP.-US-H14001-17-03930

PATIENT
  Age: 27 Year
  Sex: Female

DRUGS (5)
  1. DEXAMETHASONE. [Suspect]
     Active Substance: DEXAMETHASONE
     Indication: ANGIOCENTRIC LYMPHOMA
     Route: 065
  2. L-ASPARAGINASE [Suspect]
     Active Substance: ASPARAGINASE
     Indication: ANGIOCENTRIC LYMPHOMA
     Route: 065
  3. METHOTREXATE. [Suspect]
     Active Substance: METHOTREXATE
     Indication: ANGIOCENTRIC LYMPHOMA
     Route: 065
  4. IFOSFAMIDE. [Suspect]
     Active Substance: IFOSFAMIDE
     Indication: ANGIOCENTRIC LYMPHOMA
     Route: 065
  5. ETOPOSIDE. [Suspect]
     Active Substance: ETOPOSIDE
     Indication: ANGIOCENTRIC LYMPHOMA
     Route: 065

REACTIONS (4)
  - Obstructive airways disorder [Recovered/Resolved with Sequelae]
  - Laryngeal disorder [Recovered/Resolved with Sequelae]
  - Tracheal stenosis [Not Recovered/Not Resolved]
  - Laryngeal stenosis [Recovered/Resolved with Sequelae]
